FAERS Safety Report 22050857 (Version 1)
Quarter: 2023Q1

REPORT INFORMATION
  Report Type: Spontaneous
  Country: US (occurrence: None)
  Receive Date: 20230301
  Receipt Date: 20230301
  Transmission Date: 20230417
  Serious: Yes (Hospitalization)
  Sender: FDA-Public Use
  Company Number: None

PATIENT
  Age: 54 Year
  Sex: Male

DRUGS (1)
  1. ABIRATERONE [Suspect]
     Active Substance: ABIRATERONE
     Dosage: 1000 MG DAILY ORAL?
     Route: 048

REACTIONS (7)
  - Clavicle fracture [None]
  - Road traffic accident [None]
  - Hot flush [None]
  - Libido disorder [None]
  - Fatigue [None]
  - Insomnia [None]
  - Therapy change [None]

NARRATIVE: CASE EVENT DATE: 20230301
